FAERS Safety Report 16834983 (Version 1)
Quarter: 2019Q3

REPORT INFORMATION
  Report Type: Spontaneous
  Country: US (occurrence: US)
  Receive Date: 20190920
  Receipt Date: 20190920
  Transmission Date: 20191005
  Serious: Yes (Other)
  Sender: FDA-Public Use
  Company Number: US-ELI_LILLY_AND_COMPANY-US201909005037

PATIENT
  Age: 73 Year
  Sex: Male

DRUGS (7)
  1. CIALIS [Suspect]
     Active Substance: TADALAFIL
     Indication: ERECTILE DYSFUNCTION
     Dosage: 5 MG, PRN
     Route: 048
  2. NABUMETONE. [Concomitant]
     Active Substance: NABUMETONE
     Indication: ANTIINFLAMMATORY THERAPY
     Dosage: 750 MG, BID
  3. CIALIS [Suspect]
     Active Substance: TADALAFIL
     Indication: ERECTILE DYSFUNCTION
     Dosage: 10 MG, PRN
     Route: 048
  4. TADALAFIL. [Suspect]
     Active Substance: TADALAFIL
     Indication: ERECTILE DYSFUNCTION
     Dosage: 10 MG, PRN
     Route: 048
  5. BALSALAZIDE [Concomitant]
     Active Substance: BALSALAZIDE
     Indication: ANTIINFLAMMATORY THERAPY
     Dosage: 750 MG, TID
  6. BALSALAZIDE [Concomitant]
     Active Substance: BALSALAZIDE
     Indication: DIVERTICULUM INTESTINAL
  7. TRAMADOL. [Concomitant]
     Active Substance: TRAMADOL
     Indication: PAIN
     Dosage: 50 MG, BID (UPTO 4 PIILS A DAY)

REACTIONS (3)
  - Procedural pain [Recovering/Resolving]
  - Nocturia [Not Recovered/Not Resolved]
  - Arthritis [Unknown]
